FAERS Safety Report 10539787 (Version 1)
Quarter: 2014Q4

REPORT INFORMATION
  Report Type: Spontaneous
  Country: NL (occurrence: NL)
  Receive Date: 20141024
  Receipt Date: 20141024
  Transmission Date: 20150529
  Serious: Yes (Hospitalization, Other)
  Sender: FDA-Public Use
  Company Number: NL-JNJFOC-20141010927

PATIENT
  Age: 43 Year
  Sex: Female
  Weight: 35 kg

DRUGS (2)
  1. NIFEDIPINE. [Concomitant]
     Active Substance: NIFEDIPINE
     Indication: RAYNAUD^S PHENOMENON
     Route: 065
  2. PARACETAMOL [Suspect]
     Active Substance: ACETAMINOPHEN
     Indication: PRODUCT USED FOR UNKNOWN INDICATION
     Dosage: UP TO 2 G/DAY
     Route: 065

REACTIONS (6)
  - Oral candidiasis [Unknown]
  - Hepatitis [Unknown]
  - Hypoglycaemic coma [Unknown]
  - Blood alkaline phosphatase increased [Recovering/Resolving]
  - Weight decreased [Recovering/Resolving]
  - Transaminases increased [Recovered/Resolved]
